FAERS Safety Report 8134117-5 (Version None)
Quarter: 2012Q1

REPORT INFORMATION
  Report Type: 
  Country: None (occurrence: None)
  Receive Date: 20120214
  Receipt Date: 20120207
  Transmission Date: 20120608
  Serious: Yes (Hospitalization)
  Sender: FDA-Public Use
  Company Number: US-AMGEN-USASP2012008360

PATIENT
  Age: 47 Year
  Sex: Male

DRUGS (1)
  1. ENBREL [Suspect]
     Indication: PSORIASIS
     Dosage: 50 MG, QWK
     Dates: start: 20081015

REACTIONS (5)
  - INJECTION SITE PAIN [None]
  - BACK PAIN [None]
  - DRY SKIN [None]
  - INJECTION SITE MASS [None]
  - SURGERY [None]
